FAERS Safety Report 8816608 (Version 1)
Quarter: 2012Q4

REPORT INFORMATION
  Report Type: Spontaneous
  Country: FR (occurrence: None)
  Receive Date: 20120928
  Receipt Date: 20120928
  Transmission Date: 20130627
  Serious: Yes (Hospitalization)
  Sender: FDA-Public Use
  Company Number: FR-20120205

PATIENT
  Age: 65 Year
  Sex: Male

DRUGS (2)
  1. HEXABRIX [Suspect]
     Indication: CORONARY ANGIOPLASTY
     Dates: start: 20120717
  2. GLUCOPHAGE [Suspect]
     Indication: DRUG USE FOR UNKNOWN INDICATION

REACTIONS (7)
  - Renal tubular necrosis [None]
  - Renal failure [None]
  - Haemodialysis [None]
  - Vomiting [None]
  - Diarrhoea [None]
  - Dehydration [None]
  - Acute coronary syndrome [None]
